FAERS Safety Report 8905809 (Version 2)
Quarter: 2012Q4

REPORT INFORMATION
  Report Type: 
  Country: JP (occurrence: JP)
  Receive Date: 20121113
  Receipt Date: 20121127
  Transmission Date: 20130627
  Serious: Yes (Hospitalization)
  Sender: FDA-Public Use
  Company Number: JP-GLAXOSMITHKLINE-B0843614A

PATIENT
  Age: 68 Year
  Sex: Female
  Weight: 43 kg

DRUGS (10)
  1. VALTREX [Suspect]
     Indication: HERPES ZOSTER
     Dosage: 500MG Three times per day
     Route: 048
     Dates: start: 20121029, end: 20121029
  2. TOYOFAROL [Concomitant]
     Route: 048
  3. DIOVAN [Concomitant]
     Route: 048
  4. PLAVIX [Concomitant]
     Route: 048
  5. CARDENALIN [Concomitant]
     Route: 048
  6. BUFFERIN [Concomitant]
     Route: 048
  7. FOSRENOL [Concomitant]
     Route: 048
  8. FAMOTIDINE [Concomitant]
     Route: 048
  9. NITRODERM TTS [Concomitant]
     Route: 062
  10. ADALAT-CR [Concomitant]
     Route: 048

REACTIONS (2)
  - Depressed level of consciousness [Recovered/Resolved]
  - Dyskinesia [Recovered/Resolved]
